FAERS Safety Report 9513063 (Version 2)
Quarter: 2013Q3

REPORT INFORMATION
  Report Type: Spontaneous
  Country: IN (occurrence: US)
  Receive Date: 20130910
  Receipt Date: 20130919
  Transmission Date: 20140515
  Serious: Yes (Other)
  Sender: FDA-Public Use
  Company Number: US-PFIZER INC-2013254300

PATIENT
  Age: 21 Year
  Sex: Female

DRUGS (1)
  1. SULFAMETHOXAZOLE/TRIMETHOPRIM [Suspect]
     Indication: URINARY TRACT DISORDER
     Dosage: 1 TABLET, UNK

REACTIONS (3)
  - Drug hypersensitivity [Recovered/Resolved]
  - Myopia [Recovered/Resolved]
  - Angioedema [Recovered/Resolved]
